FAERS Safety Report 5515204-4 (Version None)
Quarter: 2007Q4

REPORT INFORMATION
  Report Type: 
  Country: None (occurrence: None)
  Receive Date: 20071109
  Receipt Date: 20071101
  Transmission Date: 20080405
  Serious: Yes (Other)
  Sender: FDA-Public Use
  Company Number: CHPA2007US10826

PATIENT
  Age: 24 Month
  Sex: Female
  Weight: 12.2 kg

DRUGS (1)
  1. TRIAMINIC SRT [Suspect]
     Dosage: ONCE/SINGE, ORAL
     Route: 048
     Dates: start: 20071007, end: 20071007

REACTIONS (2)
  - ACCIDENTAL DRUG INTAKE BY CHILD [None]
  - NO ADVERSE DRUG REACTION [None]
